FAERS Safety Report 5381462-2 (Version None)
Quarter: 2007Q3

REPORT INFORMATION
  Report Type: 
  Country: None (occurrence: None)
  Receive Date: 20070709
  Receipt Date: 20070628
  Transmission Date: 20080115
  Serious: Yes (Death, Hospitalization)
  Sender: FDA-Public Use
  Company Number: IT-BRISTOL-MYERS SQUIBB COMPANY-13823703

PATIENT
  Age: 64 Year
  Sex: Male

DRUGS (1)
  1. GLUCOPHAGE [Suspect]
     Indication: DIABETES MELLITUS
     Route: 048
     Dates: start: 20041218

REACTIONS (10)
  - ARTHRITIS [None]
  - CARDIO-RESPIRATORY ARREST [None]
  - EMPHYSEMA [None]
  - HEPATIC STEATOSIS [None]
  - METABOLIC ACIDOSIS [None]
  - NEPHROPATHY [None]
  - PULMONARY EMBOLISM [None]
  - PULMONARY OEDEMA [None]
  - SEPTIC SHOCK [None]
  - VISCERAL CONGESTION [None]
